FAERS Safety Report 5854703-2 (Version None)
Quarter: 2008Q3

REPORT INFORMATION
  Report Type: 
  Country: None (occurrence: None)
  Receive Date: 20080822
  Receipt Date: 20071214
  Transmission Date: 20090109
  Serious: No
  Sender: FDA-Public Use
  Company Number: US-ABBOTT-07P-163-0430393-00

PATIENT
  Age: 6 Decade
  Sex: Male

DRUGS (3)
  1. SYNTHROID [Suspect]
     Indication: HORMONE REPLACEMENT THERAPY
     Route: 048
     Dates: start: 20071201
  2. SYNTHROID [Suspect]
     Dates: start: 20071001, end: 20071101
  3. SYNTHROID [Suspect]
     Dates: start: 20060101

REACTIONS (2)
  - OESOPHAGEAL PAIN [None]
  - THROAT IRRITATION [None]
